FAERS Safety Report 6055068-6 (Version None)
Quarter: 2009Q1

REPORT INFORMATION
  Report Type: 
  Country: None (occurrence: None)
  Receive Date: 20090128
  Receipt Date: 20090115
  Transmission Date: 20090719
  Serious: Yes (Hospitalization)
  Sender: FDA-Public Use
  Company Number: JP-ROCHE-595141

PATIENT
  Sex: Female

DRUGS (7)
  1. PEG-INTERFERON ALFA 2A (RO 25-8310) [Suspect]
     Indication: HEPATITIS C
     Route: 058
     Dates: start: 20080207
  2. RIBAVIRIN [Suspect]
     Indication: HEPATITIS C
     Route: 048
     Dates: start: 20080207, end: 20080313
  3. RIBAVIRIN [Suspect]
     Route: 048
     Dates: start: 20080402, end: 20080408
  4. RIBAVIRIN [Suspect]
     Dosage: DOSE INCREASED
     Route: 048
     Dates: start: 20080409, end: 20080506
  5. RIBAVIRIN [Suspect]
     Route: 048
     Dates: start: 20080507
  6. BASEN [Concomitant]
     Route: 048
  7. AMARYL [Concomitant]
     Route: 048

REACTIONS (6)
  - BACK PAIN [None]
  - HAEMOGLOBIN DECREASED [None]
  - MALAISE [None]
  - MUSCULOSKELETAL STIFFNESS [None]
  - NIGHT SWEATS [None]
  - PYREXIA [None]
